FAERS Safety Report 4915023-3 (Version None)
Quarter: 2006Q1

REPORT INFORMATION
  Report Type: 
  Country: None (occurrence: None)
  Receive Date: 20060215
  Receipt Date: 20060215
  Transmission Date: 20060701
  Serious: Yes (Life-Threatening)
  Sender: FDA-Public Use
  Company Number: None

PATIENT
  Sex: Male
  Weight: 90.7194 kg

DRUGS (1)
  1. CYPHER DES CARDIAC [Suspect]
     Dosage: MODEL 21703
     Dates: start: 20060210

REACTIONS (2)
  - CARDIAC ARREST [None]
  - THROMBOSIS IN DEVICE [None]
